FAERS Safety Report 8525593 (Version 2)
Quarter: 2013Q2

REPORT INFORMATION
  Report Type: Spontaneous
  Country: US (occurrence: US)
  Receive Date: 20120423
  Receipt Date: 20130410
  Transmission Date: 20140414
  Serious: Yes (Hospitalization)
  Sender: FDA-Public Use
  Company Number: US-BAYER-2012-036441

PATIENT
  Age: 19 Year
  Sex: Female

DRUGS (1)
  1. YASMIN [Suspect]
     Dosage: UNK
     Route: 048

REACTIONS (5)
  - Oedema peripheral [None]
  - Pain in extremity [None]
  - Vena cava thrombosis [None]
  - Pelvic venous thrombosis [None]
  - Deep vein thrombosis [None]
